FAERS Safety Report 4568457-3 (Version None)
Quarter: 2005Q1

REPORT INFORMATION
  Report Type: 
  Country: None (occurrence: None)
  Receive Date: 20050131
  Receipt Date: 20050118
  Transmission Date: 20050727
  Serious: No
  Sender: FDA-Public Use
  Company Number: 12829123

PATIENT
  Age: 34 Year
  Sex: Female

DRUGS (3)
  1. SUMACEF (CEFADROXIL MONOHYDRATE) [Suspect]
     Indication: NASOPHARYNGITIS
     Dosage: 250 MILLIGRAM 3/1 DAY
     Route: 048
     Dates: start: 20050113, end: 20050113
  2. LOXONIN (LOXOPROFEN SODIUM) [Concomitant]
  3. MEDICON (DEXTROMETHORPHAN HYDROBROMIDE) [Concomitant]

REACTIONS (1)
  - ANAPHYLACTIC SHOCK [None]
